FAERS Safety Report 9148729 (Version 1)
Quarter: 2013Q1

REPORT INFORMATION
  Report Type: Spontaneous
  Country: US (occurrence: None)
  Receive Date: 20130227
  Receipt Date: 20130227
  Transmission Date: 20140127
  Serious: Yes (Death, Other)
  Sender: FDA-Public Use
  Company Number: AUR-APL-2013-00795

PATIENT
  Age: 45 Year
  Sex: Female

DRUGS (12)
  1. GABAPENTIN (GABAPENTIN) [Suspect]
  2. MIRTAZAPINE [Suspect]
  3. ZOLPIDEM [Suspect]
  4. FLUOXETINE [Suspect]
  5. ALPRAZOLAM [Suspect]
  6. HYDROMORPHONE [Suspect]
  7. HYDROXYZINE [Suspect]
  8. DIPHENHYDRAMINE [Suspect]
  9. DEXTROMETHORPHAN [Suspect]
  10. PROMETHAZINE [Suspect]
  11. ACETAMINOPHEN\HYDROCODONE [Suspect]
  12. LORAZEPAM [Suspect]

REACTIONS (4)
  - Respiratory arrest [None]
  - Cardiac arrest [None]
  - Drug abuse [None]
  - Toxicity to various agents [None]
